FAERS Safety Report 5026969-2 (Version None)
Quarter: 2006Q2

REPORT INFORMATION
  Report Type: 
  Country: None (occurrence: None)
  Receive Date: 20060609
  Receipt Date: 20060530
  Transmission Date: 20061013
  Serious: Yes (Hospitalization)
  Sender: FDA-Public Use
  Company Number: 2006068194

PATIENT
  Age: 30 Year
  Sex: Female

DRUGS (1)
  1. ALPRAZOLAM [Suspect]
     Indication: SUICIDE ATTEMPT
     Dosage: 14 MG (14 MG), ORAL
     Route: 048
     Dates: start: 20060524

REACTIONS (5)
  - DEPRESSION [None]
  - DRUG TOXICITY [None]
  - INTENTIONAL OVERDOSE [None]
  - LIVER DISORDER [None]
  - SUICIDE ATTEMPT [None]
